FAERS Safety Report 18285638 (Version 1)
Quarter: 2020Q3

REPORT INFORMATION
  Report Type: Spontaneous
  Country: US (occurrence: US)
  Receive Date: 20200918
  Receipt Date: 20200918
  Transmission Date: 20201103
  Serious: Yes (Other)
  Sender: FDA-Public Use
  Company Number: US-APOTEX-2020AP017787

PATIENT
  Age: 82 Year
  Sex: Male

DRUGS (2)
  1. BICALUTAMIDE. [Suspect]
     Active Substance: BICALUTAMIDE
     Indication: MALIGNANT NEOPLASM OF LACRIMAL DUCT
     Dosage: 150 MILLIGRAM, QD
     Route: 048
  2. BICALUTAMIDE. [Suspect]
     Active Substance: BICALUTAMIDE
     Indication: ADENOCARCINOMA
     Dosage: 50 MILLIGRAM, QD
     Route: 048

REACTIONS (4)
  - Loss of libido [Recovering/Resolving]
  - Hot flush [Unknown]
  - Sexual dysfunction [Recovering/Resolving]
  - Erectile dysfunction [Recovering/Resolving]
